FAERS Safety Report 7982006-9 (Version None)
Quarter: 2011Q4

REPORT INFORMATION
  Report Type: 
  Country: None (occurrence: None)
  Receive Date: 20111215
  Receipt Date: 20111206
  Transmission Date: 20120403
  Serious: Yes (Other)
  Sender: FDA-Public Use
  Company Number: US-BAYER-2011-031371

PATIENT
  Age: 20 Year
  Sex: Female
  Weight: 58.957 kg

DRUGS (7)
  1. PROTONIX [Concomitant]
     Dosage: UNK UNK, BID
  2. ACETAMINOPHEN [Concomitant]
  3. YASMIN [Suspect]
     Indication: CONTRACEPTION
     Dosage: UNK
     Dates: start: 20031101, end: 20040101
  4. IBUPROFEN (ADVIL) [Concomitant]
  5. MAXALT [Concomitant]
     Dosage: UNK UNK, PRN
  6. EXCEDRIN [ACETYLSALICYLIC ACID,CAFFEINE,PARACETAMOL,SALICYLAMIDE] [Concomitant]
  7. REGLAN [Concomitant]
     Dosage: UNK UNK, TID

REACTIONS (7)
  - PAIN [None]
  - MALAISE [None]
  - CHOLECYSTITIS CHRONIC [None]
  - INJURY [None]
  - VOMITING [None]
  - GALLBLADDER INJURY [None]
  - ABDOMINAL PAIN UPPER [None]
